FAERS Safety Report 5034171-3 (Version None)
Quarter: 2006Q2

REPORT INFORMATION
  Report Type: 
  Country: None (occurrence: None)
  Receive Date: 20060626
  Receipt Date: 20060313
  Transmission Date: 20061013
  Serious: Yes (Other)
  Sender: FDA-Public Use
  Company Number: US-GLAXOSMITHKLINE-A0597376A

PATIENT
  Age: 51 Year
  Sex: Female

DRUGS (15)
  1. AVANDAMET [Suspect]
     Route: 048
     Dates: end: 20050101
  2. ACTOS [Suspect]
     Route: 065
     Dates: start: 20060208, end: 20060219
  3. LORTAB [Concomitant]
  4. MEPERGAN [Concomitant]
  5. LIPITOR [Concomitant]
  6. STARLIX [Concomitant]
  7. PLAVIX [Concomitant]
  8. EFFEXOR [Concomitant]
  9. ADVAIR DISKUS 100/50 [Concomitant]
  10. ALBUTEROL [Concomitant]
  11. SPIRONOLACTONE [Concomitant]
  12. NOVOLOG [Concomitant]
  13. CRESTOR [Concomitant]
  14. BYETTA [Concomitant]
  15. ALLEGRA [Concomitant]

REACTIONS (4)
  - PRURITUS [None]
  - RASH PAPULAR [None]
  - RASH VESICULAR [None]
  - STEVENS-JOHNSON SYNDROME [None]
